FAERS Safety Report 8590558-3 (Version None)
Quarter: 2012Q3

REPORT INFORMATION
  Report Type: 
  Country: None (occurrence: None)
  Receive Date: 20120813
  Receipt Date: 20120801
  Transmission Date: 20120928
  Serious: Yes (Hospitalization)
  Sender: FDA-Public Use
  Company Number: GB-TEVA-351915ISR

PATIENT
  Age: 75 Year
  Sex: Female

DRUGS (4)
  1. METOCLOPRAMIDE [Suspect]
     Indication: NAUSEA
     Route: 048
  2. LANSOPRAZOLE [Concomitant]
  3. GABAPENTIN [Concomitant]
  4. CHEMOTHERAPY [Concomitant]

REACTIONS (5)
  - DYSARTHRIA [None]
  - TINNITUS [None]
  - MUSCLE TWITCHING [None]
  - NAUSEA [None]
  - DYSKINESIA [None]
